FAERS Safety Report 5814623-6 (Version None)
Quarter: 2008Q3

REPORT INFORMATION
  Report Type: 
  Country: None (occurrence: None)
  Receive Date: 20080718
  Receipt Date: 20080111
  Transmission Date: 20090109
  Serious: No
  Sender: FDA-Public Use
  Company Number: US-KINGPHARMUSA00001-K200800038

PATIENT

DRUGS (4)
  1. LEVOXYL [Suspect]
     Indication: POST PROCEDURAL HYPOTHYROIDISM
     Dosage: 150 MCG, QD
     Route: 048
  2. PRILOSEC [Concomitant]
     Indication: GASTRIC DISORDER
     Dosage: UNK, PRN
  3. PRILOSEC [Concomitant]
     Indication: IRRITABLE BOWEL SYNDROME
  4. PRILOSEC [Concomitant]
     Indication: DYSPEPSIA

REACTIONS (7)
  - ANXIETY [None]
  - BODY TEMPERATURE FLUCTUATION [None]
  - DRUG INEFFECTIVE [None]
  - INSOMNIA [None]
  - NIGHTMARE [None]
  - POOR QUALITY SLEEP [None]
  - TREMOR [None]
